FAERS Safety Report 7573995-5 (Version None)
Quarter: 2011Q2

REPORT INFORMATION
  Report Type: 
  Country: None (occurrence: None)
  Receive Date: 20110627
  Receipt Date: 20110616
  Transmission Date: 20111010
  Serious: Yes (Other)
  Sender: FDA-Public Use
  Company Number: CA-JNJFOC-20110504033

PATIENT
  Age: 49 Year
  Sex: Female
  Weight: 105 kg

DRUGS (8)
  1. METHOTREXATE [Concomitant]
     Indication: RHEUMATOID ARTHRITIS
     Route: 058
     Dates: start: 20090101, end: 20110509
  2. PREDNISONE [Concomitant]
     Indication: RHEUMATOID ARTHRITIS
     Dates: start: 20091201
  3. GOLIMUMAB [Suspect]
     Indication: RHEUMATOID ARTHRITIS
     Route: 058
     Dates: start: 20101122, end: 20110509
  4. MONOCOR [Concomitant]
     Indication: HYPERTENSION
     Dosage: FREQUENCY ^DIE^
     Route: 048
     Dates: start: 20000101
  5. CRESTOR [Concomitant]
     Indication: PROPHYLAXIS
     Dosage: FREQUENCY ^DIE^
  6. FOLIC ACID [Concomitant]
     Indication: PROPHYLAXIS
     Dosage: FREQUENCY ^6J/7^
     Dates: start: 20090101
  7. HYDROXYCHLOROQUINE SULFATE [Concomitant]
     Indication: RHEUMATOID ARTHRITIS
     Dates: start: 20100401
  8. CLONAZEPAM [Concomitant]
     Indication: ANXIETY
     Dates: start: 20100101

REACTIONS (1)
  - BREAST CANCER [None]
